FAERS Safety Report 18394507 (Version 2)
Quarter: 2020Q4

REPORT INFORMATION
  Report Type: Spontaneous
  Country: US (occurrence: US)
  Receive Date: 20201016
  Receipt Date: 20201105
  Transmission Date: 20210114
  Serious: Yes (Other)
  Sender: FDA-Public Use
  Company Number: US-TAKEDA-2020TUS042978

PATIENT
  Sex: Male
  Weight: 86 kg

DRUGS (3)
  1. LUSPATERCEPT. [Concomitant]
     Active Substance: LUSPATERCEPT
     Indication: DYSPLASIA
  2. VELCADE [Suspect]
     Active Substance: BORTEZOMIB
     Indication: PLASMA CELL MYELOMA
     Dosage: UNK
     Route: 058
     Dates: start: 201810
  3. DEXAMETHASONE. [Concomitant]
     Active Substance: DEXAMETHASONE
     Indication: PLASMA CELL MYELOMA
     Dosage: 4 MILLIGRAM, 1/WEEK
     Route: 065

REACTIONS (4)
  - Injection site pain [Unknown]
  - Infusion site swelling [Unknown]
  - Injection site swelling [Unknown]
  - Myelodysplastic syndrome [Unknown]
